FAERS Safety Report 7893771 (Version 5)
Quarter: 2013Q1

REPORT INFORMATION
  Report Type: Spontaneous
  Country: US (occurrence: US)
  Receive Date: 20110411
  Receipt Date: 20130102
  Transmission Date: 20140127
  Serious: Yes (Hospitalization, Other)
  Sender: FDA-Public Use
  Company Number: US-ASTRAZENECA-2010SE56356

PATIENT
  Age: 86 Year
  Sex: Female

DRUGS (2)
  1. CRESTOR [Suspect]
     Route: 048
     Dates: start: 2002
  2. ZOCOR [Concomitant]

REACTIONS (4)
  - Cataract [Unknown]
  - Atrial fibrillation [Unknown]
  - Hypercholesterolaemia [Unknown]
  - Asthenia [Unknown]
